FAERS Safety Report 11710395 (Version 2)
Quarter: 2015Q4

REPORT INFORMATION
  Report Type: Spontaneous
  Country: US (occurrence: US)
  Receive Date: 20151104
  Receipt Date: 20151110
  Transmission Date: 20160304
  Serious: No
  Sender: FDA-Public Use
  Company Number: US-ELI_LILLY_AND_COMPANY-US201106007403

PATIENT
  Age: 66 Year
  Sex: Female
  Weight: 68 kg

DRUGS (3)
  1. FORTEO [Suspect]
     Active Substance: TERIPARATIDE
     Indication: OSTEOPOROSIS
     Dosage: 20 UG, QD
     Dates: start: 20110307
  2. FORTEO [Suspect]
     Active Substance: TERIPARATIDE
     Dosage: 20 UG, QD
     Dates: end: 20111221
  3. CALCIUM [Concomitant]
     Active Substance: CALCIUM
     Dosage: 600 MG, BID
     Route: 048

REACTIONS (9)
  - Blood calcium increased [Recovering/Resolving]
  - Intentional product misuse [Unknown]
  - Asthma [Unknown]
  - Heart rate increased [Unknown]
  - Fear of disease [Unknown]
  - Hypertension [Not Recovered/Not Resolved]
  - Ecchymosis [Unknown]
  - Stress [Unknown]
  - Arthralgia [Unknown]

NARRATIVE: CASE EVENT DATE: 20110922
